FAERS Safety Report 15963095 (Version 1)
Quarter: 2019Q1

REPORT INFORMATION
  Report Type: Report from Study
  Country: CA (occurrence: CA)
  Receive Date: 20190214
  Receipt Date: 20190214
  Transmission Date: 20190417
  Serious: Yes (Other)
  Sender: FDA-Public Use
  Company Number: CA-EXELIXIS-XL18419018782

PATIENT
  Age: 68 Year
  Sex: Female

DRUGS (1)
  1. XL184 [Suspect]
     Active Substance: CABOZANTINIB
     Indication: UTERINE CANCER
     Dosage: UNK
     Dates: start: 201508

REACTIONS (1)
  - Breast cancer [Unknown]
